FAERS Safety Report 10062553 (Version 3)
Quarter: 2014Q2

REPORT INFORMATION
  Report Type: Report from Study
  Country: DE (occurrence: DE)
  Receive Date: 20140407
  Receipt Date: 20140515
  Transmission Date: 20141212
  Serious: Yes (Hospitalization)
  Sender: FDA-Public Use
  Company Number: DE-ABBVIE-14P-062-1217057-00

PATIENT
  Age: 69 Year
  Sex: Female
  Weight: 83 kg

DRUGS (6)
  1. HUMIRA [Suspect]
     Indication: RHEUMATOID ARTHRITIS
     Route: 058
     Dates: start: 20130610, end: 20131211
  2. TRANDOLAPRIL/VERAPAMIL [Suspect]
     Indication: PRODUCT USED FOR UNKNOWN INDICATION
  3. METHOTREXATE [Suspect]
     Indication: PRODUCT USED FOR UNKNOWN INDICATION
  4. GLUCOCORTICOIDS [Suspect]
     Indication: PRODUCT USED FOR UNKNOWN INDICATION
  5. SIMVASTATINE [Suspect]
     Indication: PRODUCT USED FOR UNKNOWN INDICATION
  6. VERAPAMIL [Suspect]
     Indication: PRODUCT USED FOR UNKNOWN INDICATION

REACTIONS (2)
  - Arthropathy [Recovered/Resolved]
  - Spinal osteoarthritis [Unknown]
